FAERS Safety Report 7003186-8 (Version None)
Quarter: 2010Q3

REPORT INFORMATION
  Report Type: 
  Country: None (occurrence: None)
  Receive Date: 20100920
  Receipt Date: 20100908
  Transmission Date: 20110219
  Serious: Yes (Hospitalization, Other)
  Sender: FDA-Public Use
  Company Number: FR-WYE-H14040610

PATIENT
  Sex: Female
  Weight: 59 kg

DRUGS (10)
  1. INIPOMP [Suspect]
     Indication: GASTRIC ULCER
     Route: 048
     Dates: start: 20070201, end: 20100204
  2. CRESTOR [Suspect]
     Indication: HYPERCHOLESTEROLAEMIA
     Route: 048
     Dates: start: 20070917, end: 20100204
  3. PROTELOS [Suspect]
     Indication: OSTEOPOROSIS
     Route: 048
     Dates: start: 20070723
  4. DUPHALAC [Concomitant]
     Route: 048
  5. PREDNISONE [Concomitant]
     Indication: TEMPORAL ARTERITIS
     Dosage: 5 MG
     Route: 048
     Dates: start: 20070301
  6. DIFFU K [Concomitant]
     Dosage: 2 DOSAGE FORMS
     Route: 048
  7. VERAPAMIL [Concomitant]
     Dosage: 120, 2 DOSAGE FORMS
     Route: 048
  8. ALLOPURINOL [Suspect]
     Route: 048
     Dates: start: 20070101
  9. ALLOPURINOL [Suspect]
     Route: 048
     Dates: end: 20100104
  10. LASIX [Suspect]
     Indication: HYPERTENSION
     Route: 048

REACTIONS (21)
  - ACUTE RESPIRATORY DISTRESS SYNDROME [None]
  - ALLERGIC GRANULOMATOUS ANGIITIS [None]
  - AXONAL NEUROPATHY [None]
  - BLOOD CREATINE PHOSPHOKINASE INCREASED [None]
  - BRONCHIAL DISORDER [None]
  - BRONCHIAL OBSTRUCTION [None]
  - BRONCHOPULMONARY ASPERGILLOSIS ALLERGIC [None]
  - CONDITION AGGRAVATED [None]
  - DYSPNOEA [None]
  - GENERAL PHYSICAL HEALTH DETERIORATION [None]
  - HYPOGAMMAGLOBULINAEMIA [None]
  - INFECTION [None]
  - INFLAMMATION [None]
  - LIPODYSTROPHY ACQUIRED [None]
  - LIPOMATOSIS [None]
  - MUSCULAR DYSTROPHY [None]
  - MYALGIA [None]
  - ORGANISING PNEUMONIA [None]
  - RENAL FAILURE CHRONIC [None]
  - SICCA SYNDROME [None]
  - WEIGHT DECREASED [None]
